FAERS Safety Report 9290375 (Version 2)
Quarter: 2013Q2

REPORT INFORMATION
  Report Type: Spontaneous
  Country: US (occurrence: US)
  Receive Date: 20130515
  Receipt Date: 20130607
  Transmission Date: 20140414
  Serious: No
  Sender: FDA-Public Use
  Company Number: US-PFIZER INC-2013147623

PATIENT
  Age: 54 Year
  Sex: Male

DRUGS (9)
  1. SUTENT [Suspect]
     Indication: RENAL CANCER
     Dosage: 50 MG, 1X/DAY (12.5 MG- 4 CAPSULES DAILY)
     Route: 048
     Dates: start: 20130112, end: 20130509
  2. LIPITOR [Concomitant]
     Dosage: UNK
  3. GLIPIZIDE [Concomitant]
     Dosage: UNK
  4. LISINOPRIL [Concomitant]
     Dosage: UNK
  5. SITAGLIPTIN [Concomitant]
     Dosage: UNK
  6. EZETIMIBE [Concomitant]
     Dosage: UNK
  7. VITAMIN D3 [Concomitant]
     Dosage: UNK
  8. ASPIRIN [Concomitant]
     Dosage: UNK
  9. MULTIVITAMINS [Concomitant]

REACTIONS (1)
  - Blood glucose increased [Unknown]
